FAERS Safety Report 18156808 (Version 1)
Quarter: 2020Q3

REPORT INFORMATION
  Report Type: Spontaneous
  Country: US (occurrence: US)
  Receive Date: 20200817
  Receipt Date: 20200817
  Transmission Date: 20201103
  Serious: No
  Sender: FDA-Public Use
  Company Number: None

PATIENT
  Sex: Female

DRUGS (2)
  1. AMBRISENTAN [Suspect]
     Active Substance: AMBRISENTAN
  2. SILDENAFIL. [Concomitant]
     Active Substance: SILDENAFIL

REACTIONS (2)
  - Hypotension [None]
  - Syncope [None]
